FAERS Safety Report 5852290-6 (Version None)
Quarter: 2008Q3

REPORT INFORMATION
  Report Type: 
  Country: None (occurrence: None)
  Receive Date: 20080821
  Receipt Date: 20080818
  Transmission Date: 20090109
  Serious: Yes (Death, Other)
  Sender: FDA-Public Use
  Company Number: EG-BAYER-200824468GPV

PATIENT
  Age: 42 Year
  Sex: Male
  Weight: 70 kg

DRUGS (2)
  1. NEXAVAR [Suspect]
     Indication: HEPATIC NEOPLASM MALIGNANT
     Dosage: TOTAL DAILY DOSE: 400 MG
     Route: 048
     Dates: start: 20080329, end: 20080510
  2. NEXAVAR [Suspect]
     Dosage: TOTAL DAILY DOSE: 800 MG
     Route: 048
     Dates: start: 20080511, end: 20080601

REACTIONS (3)
  - COMA HEPATIC [None]
  - MELAENA [None]
  - OESOPHAGEAL VARICES HAEMORRHAGE [None]
